FAERS Safety Report 15118638 (Version 1)
Quarter: 2018Q3

REPORT INFORMATION
  Report Type: Spontaneous
  Country: US (occurrence: US)
  Receive Date: 20180709
  Receipt Date: 20180709
  Transmission Date: 20181010
  Serious: Yes (Hospitalization, Other)
  Sender: FDA-Public Use
  Company Number: US-ROCHE-2148881

PATIENT
  Sex: Male

DRUGS (7)
  1. ERIVEDGE [Suspect]
     Active Substance: VISMODEGIB
     Indication: PLASMA CELL MYELOMA
     Dosage: ONGOING:YES
     Route: 048
     Dates: start: 20170909
  2. VITAMIN D3 [Concomitant]
     Active Substance: CHOLECALCIFEROL
  3. LIDOCAINE. [Concomitant]
     Active Substance: LIDOCAINE
  4. DULOXETINE. [Concomitant]
     Active Substance: DULOXETINE
  5. CHOLESTYRAMINE. [Concomitant]
     Active Substance: CHOLESTYRAMINE
  6. FOLIC ACID. [Concomitant]
     Active Substance: FOLIC ACID
  7. REVLIMID [Concomitant]
     Active Substance: LENALIDOMIDE

REACTIONS (5)
  - Clostridium difficile colitis [Unknown]
  - Alopecia [Unknown]
  - Intentional product use issue [Unknown]
  - Weight decreased [Unknown]
  - Off label use [Unknown]

NARRATIVE: CASE EVENT DATE: 2018
